FAERS Safety Report 4312133-9 (Version None)
Quarter: 2004Q1

REPORT INFORMATION
  Report Type: 
  Country: None (occurrence: None)
  Receive Date: 20040305
  Receipt Date: 20040302
  Transmission Date: 20041129
  Serious: Yes (Hospitalization)
  Sender: FDA-Public Use
  Company Number: US-BRISTOL-MYERS SQUIBB COMPANY-12522363

PATIENT
  Sex: Female

DRUGS (6)
  1. GLUCOPHAGE [Suspect]
     Indication: DIABETES MELLITUS
     Route: 048
     Dates: end: 20040301
  2. COUMADIN [Concomitant]
  3. CELEBREX [Concomitant]
  4. AUGMENTIN [Concomitant]
  5. AVAPRO [Concomitant]
  6. AMARYL [Concomitant]

REACTIONS (6)
  - BLOOD AMYLASE INCREASED [None]
  - BLOOD CREATININE INCREASED [None]
  - BLOOD UREA INCREASED [None]
  - DISORIENTATION [None]
  - LETHARGY [None]
  - LIPASE INCREASED [None]
